FAERS Safety Report 8917571 (Version 1)
Quarter: 2012Q4

REPORT INFORMATION
  Report Type: 
  Country: US (occurrence: US)
  Receive Date: 20121119
  Receipt Date: 20121119
  Transmission Date: 20130627
  Serious: No
  Sender: FDA-Public Use
  Company Number: US-009507513-1211USA004883

PATIENT
  Age: 54 Year
  Sex: Female

DRUGS (1)
  1. NASONEX [Suspect]
     Indication: NASAL CONGESTION
     Dosage: 50 Microgram, bid, one spray in each nostril
     Route: 045
     Dates: start: 201210

REACTIONS (2)
  - Nasal congestion [Recovering/Resolving]
  - Rebound effect [Recovering/Resolving]
